FAERS Safety Report 12423713 (Version 1)
Quarter: 2016Q2

REPORT INFORMATION
  Report Type: Spontaneous
  Country: US (occurrence: US)
  Receive Date: 20160601
  Receipt Date: 20160601
  Transmission Date: 20160815
  Serious: No
  Sender: FDA-Public Use
  Company Number: US-NOVEN PHARMACEUTICALS, INC.-US2015000870

PATIENT
  Age: 12 Year
  Sex: Male

DRUGS (3)
  1. FLOVENT [Concomitant]
     Active Substance: FLUTICASONE PROPIONATE
     Indication: ASTHMA
     Dosage: 2 PUFFS, QD
  2. DAYTRANA [Suspect]
     Active Substance: METHYLPHENIDATE
     Indication: ATTENTION DEFICIT/HYPERACTIVITY DISORDER
     Dosage: 30 MG, QD
     Route: 062
     Dates: start: 2009
  3. DAYTRANA [Suspect]
     Active Substance: METHYLPHENIDATE
     Dosage: USING 2 PATCHES TO MAKE FOR A 40 MG DOSAGE PER DAY, QD
     Route: 062

REACTIONS (4)
  - Tic [Unknown]
  - Overdose [Unknown]
  - Off label use [Unknown]
  - Wrong technique in product usage process [Unknown]

NARRATIVE: CASE EVENT DATE: 2012
